FAERS Safety Report 8457612-8 (Version None)
Quarter: 2012Q2

REPORT INFORMATION
  Report Type: 
  Country: None (occurrence: None)
  Receive Date: 20120622
  Receipt Date: 20120614
  Transmission Date: 20120825
  Serious: No
  Sender: FDA-Public Use
  Company Number: US-BIOGENIDEC-2012BI021579

PATIENT
  Sex: Female

DRUGS (6)
  1. AVONEX [Suspect]
     Route: 030
     Dates: start: 20120516, end: 20120516
  2. IBUPROFEN [Concomitant]
     Indication: PREMEDICATION
  3. AVONEX [Suspect]
     Route: 030
     Dates: start: 20120523, end: 20120523
  4. AVONEX [Suspect]
     Route: 030
     Dates: start: 20120530, end: 20120530
  5. AVONEX [Suspect]
     Indication: MULTIPLE SCLEROSIS
     Route: 030
     Dates: end: 19961001
  6. AVONEX [Suspect]
     Route: 030
     Dates: start: 20120606

REACTIONS (4)
  - INJECTION SITE PAIN [None]
  - PAIN OF SKIN [None]
  - INFLUENZA LIKE ILLNESS [None]
  - PARAESTHESIA [None]
